FAERS Safety Report 26055429 (Version 1)
Quarter: 2025Q4

REPORT INFORMATION
  Report Type: Spontaneous
  Country: US (occurrence: US)
  Receive Date: 20251117
  Receipt Date: 20251117
  Transmission Date: 20260118
  Serious: Yes (Other)
  Sender: INTRA-CELLULAR THERAPIES
  Company Number: US-INTRA-CELLULAR THERAPIES, INC.-2025ICT02730

PATIENT
  Age: 11 Year
  Sex: Male

DRUGS (1)
  1. LUMATEPERONE [Suspect]
     Active Substance: LUMATEPERONE
     Indication: Chronic tic disorder
     Dosage: 42 MG, 1X/DAY

REACTIONS (5)
  - Syncope [Recovered/Resolved]
  - Presyncope [Recovered/Resolved]
  - Condition aggravated [Recovered/Resolved]
  - Off label use [Recovered/Resolved]
  - Drug ineffective for unapproved indication [Recovered/Resolved]
